FAERS Safety Report 4766901-X (Version None)
Quarter: 2005Q3

REPORT INFORMATION
  Report Type: 
  Country: None (occurrence: None)
  Receive Date: 20050909
  Receipt Date: 20050824
  Transmission Date: 20060218
  Serious: No
  Sender: FDA-Public Use
  Company Number: CLOF-10087

PATIENT
  Age: 75 Year
  Sex: Female

DRUGS (10)
  1. CLOFARABINE [Suspect]
     Indication: ACUTE MYELOID LEUKAEMIA
     Dosage: 43 MG QD X 5 IV
     Route: 042
     Dates: start: 20050801, end: 20050805
  2. ALLOPURINOL [Concomitant]
  3. DIAZEPAM [Concomitant]
  4. CYCLIZINE [Concomitant]
  5. ACYCLOVIR [Concomitant]
  6. CORSODYL [Concomitant]
  7. NYSTATIN [Concomitant]
  8. ZOFRAN [Concomitant]
  9. TAZOCIN [Concomitant]
  10. CHLOROPHENICOL [Concomitant]

REACTIONS (3)
  - HEADACHE [None]
  - PYREXIA [None]
  - RASH [None]
